FAERS Safety Report 7355591-8 (Version None)
Quarter: 2011Q1

REPORT INFORMATION
  Report Type: 
  Country: None (occurrence: None)
  Receive Date: 20110316
  Receipt Date: 20110308
  Transmission Date: 20110831
  Serious: Yes (Hospitalization)
  Sender: FDA-Public Use
  Company Number: B0705079A

PATIENT
  Sex: Female

DRUGS (1)
  1. VENTOLIN [Suspect]
     Dosage: 5MG SINGLE DOSE
     Route: 055

REACTIONS (7)
  - EMOTIONAL DISTRESS [None]
  - TACHYCARDIA [None]
  - TACHYPHRENIA [None]
  - DISORIENTATION [None]
  - PANIC ATTACK [None]
  - PSYCHOMOTOR HYPERACTIVITY [None]
  - LOGORRHOEA [None]
